FAERS Safety Report 8091438-2 (Version None)
Quarter: 2012Q1

REPORT INFORMATION
  Report Type: 
  Country: None (occurrence: None)
  Receive Date: 20120129
  Receipt Date: 20111106
  Transmission Date: 20120608
  Serious: No
  Sender: FDA-Public Use
  Company Number: US-ABBOTT-11P-163-0871635-00

PATIENT
  Age: 37 Year
  Sex: Male

DRUGS (8)
  1. ENTOCORT EC [Concomitant]
     Indication: PRODUCT USED FOR UNKNOWN INDICATION
  2. HUMIRA [Suspect]
     Indication: CROHN'S DISEASE
  3. OXYCONTIN [Concomitant]
     Indication: PRODUCT USED FOR UNKNOWN INDICATION
  4. HYDROCORTISONE [Concomitant]
     Indication: PRODUCT USED FOR UNKNOWN INDICATION
  5. HUMIRA [Suspect]
     Dates: start: 20111101
  6. ATIVAN [Concomitant]
     Indication: STRESS
  7. ATIVAN [Concomitant]
     Indication: ANXIETY
  8. HYDROCORTISONE [Concomitant]

REACTIONS (1)
  - RASH PAPULAR [None]
